FAERS Safety Report 4687888-4 (Version None)
Quarter: 2005Q2

REPORT INFORMATION
  Report Type: 
  Country: None (occurrence: None)
  Receive Date: 20050608
  Receipt Date: 20050525
  Transmission Date: 20051028
  Serious: Yes (Hospitalization)
  Sender: FDA-Public Use
  Company Number: 430014M05USA

PATIENT
  Age: 39 Year
  Sex: Female

DRUGS (2)
  1. NOVANTRONE [Suspect]
     Indication: MULTIPLE SCLEROSIS
     Dosage: 12 MG/M2 1 IN 1 MONTHS, INTRAVENOUS, 12 MG/M2 1 IN 3 MONTHS INTRAVENOUS
     Route: 042
     Dates: start: 20020107, end: 20020301
  2. NOVANTRONE [Suspect]
     Indication: MULTIPLE SCLEROSIS
     Dosage: 12 MG/M2 1 IN 1 MONTHS, INTRAVENOUS, 12 MG/M2 1 IN 3 MONTHS INTRAVENOUS
     Route: 042
     Dates: start: 20020301, end: 20031114

REACTIONS (8)
  - ACUTE MYELOID LEUKAEMIA [None]
  - BALANCE DISORDER [None]
  - BLAST CRISIS IN MYELOGENOUS LEUKAEMIA [None]
  - CONDITION AGGRAVATED [None]
  - COORDINATION ABNORMAL [None]
  - FALL [None]
  - MULTIPLE SCLEROSIS [None]
  - THERAPY NON-RESPONDER [None]
